FAERS Safety Report 9300259 (Version 1)
Quarter: 2012Q4

REPORT INFORMATION
  Report Type: Spontaneous
  Country: FR (occurrence: None)
  Receive Date: 20121105
  Receipt Date: 20121105
  Transmission Date: 20130627
  Serious: Yes (Hospitalization)
  Sender: FDA-Public Use
  Company Number: FR 1993 0052

PATIENT
  Age: 35 Year
  Sex: Female
  Weight: 90 kg

DRUGS (5)
  1. LIPIODOL [Suspect]
     Indication: LYMPHANGIOGRAPH
     Route: 027
     Dates: start: 19930614, end: 19930614
  2. ZYRTEC (CETIRIZINE HYDROCHLORIDE) (CETIRIZINE HYDROCHLORIDE) [Concomitant]
  3. VOLTARENE (DICLOFENAC SODIUM) (DICLOFENAC SODIUM) [Concomitant]
  4. HEXAQUINE (MELALEUCA VIRIDIFLORA OIL, QUININE BENZOATE, THIAMINE HYDROCHLORIDE) (MELALEUCA VIRIDIFLORA OIL, QUININE BENZOATE, THIAMINE HYDROCHLORIDE) [Concomitant]
  5. COQUELUSEDAL (CAMPHOR, EPHEDRINE, GELSEMIUM SEMPERVIRENS, GRINDELIA ROBUSTA, MELALEUCA VIRIDIFLORA OIL, PHENOBARBITAL) (CAMPHOR, EPHEDRINE, GELSEMIUM SEMPERVIRENS, GRINDELIA ROBUSTA, MELALEUCA VIRIDIFLORA OIL, PHENOBARBITAL) [Concomitant]

REACTIONS (2)
  - Pulmonary embolism [None]
  - Bronchospasm [None]
